FAERS Safety Report 15524977 (Version 2)
Quarter: 2019Q3

REPORT INFORMATION
  Report Type: Spontaneous
  Country: US (occurrence: US)
  Receive Date: 20181018
  Receipt Date: 20190719
  Transmission Date: 20191004
  Serious: Yes (Life-Threatening, Hospitalization, Other)
  Sender: FDA-Public Use
  Company Number: US-AMGEN-USASP2018143710

PATIENT
  Age: 59 Year
  Sex: Male
  Weight: 79.82 kg

DRUGS (11)
  1. CLONIDINE. [Concomitant]
     Active Substance: CLONIDINE
  2. ACETYLSALICYLIC ACID [Concomitant]
     Active Substance: ASPIRIN
  3. AZATHIOPRINE. [Concomitant]
     Active Substance: AZATHIOPRINE
  4. CARTIA XT [Concomitant]
     Active Substance: DILTIAZEM HYDROCHLORIDE
  5. PROLIA [Suspect]
     Active Substance: DENOSUMAB
     Indication: OSTEOPOROSIS
     Dosage: 60 MILLIGRAM, Q6MO
     Route: 058
     Dates: start: 201212
  6. LOVASTATIN. [Concomitant]
     Active Substance: LOVASTATIN
  7. SANDIMMUNE [Concomitant]
     Active Substance: CYCLOSPORINE
  8. BACTRIM [Concomitant]
     Active Substance: SULFAMETHOXAZOLE\TRIMETHOPRIM
  9. PREDNISONE. [Concomitant]
     Active Substance: PREDNISONE
  10. DILTIAZEM. [Concomitant]
     Active Substance: DILTIAZEM
  11. TRIAMTERENE HCTZ [Concomitant]
     Active Substance: HYDROCHLOROTHIAZIDE\TRIAMTERENE

REACTIONS (3)
  - Ascites [Unknown]
  - Oedema [Unknown]
  - Hepatic failure [Not Recovered/Not Resolved]

NARRATIVE: CASE EVENT DATE: 201807
